FAERS Safety Report 5097683-2 (Version None)
Quarter: 2006Q3

REPORT INFORMATION
  Report Type: 
  Country: None (occurrence: None)
  Receive Date: 20060901
  Receipt Date: 20060818
  Transmission Date: 20061208
  Serious: Yes (Death, Life-Threatening, Hospitalization)
  Sender: FDA-Public Use
  Company Number: RU-2006-002233

PATIENT
  Age: 47 Year
  Sex: Female
  Weight: 90 kg

DRUGS (4)
  1. ULTRAVIST 300 [Suspect]
     Indication: COMPUTERISED TOMOGRAM
     Dosage: 150 ML, 1 DOSE, IV BOLUS
     Route: 040
     Dates: start: 20060206, end: 20060206
  2. L-THYROXINE (LEVOTHYROXINE) [Concomitant]
  3. PREDNISOLONE [Concomitant]
  4. RADIOACTIVE IODINE [Concomitant]

REACTIONS (6)
  - ANAPHYLACTIC SHOCK [None]
  - CARDIAC ARREST [None]
  - CIRCULATORY COLLAPSE [None]
  - COMA [None]
  - LOSS OF CONSCIOUSNESS [None]
  - PULMONARY OEDEMA [None]
